FAERS Safety Report 7292991-9 (Version None)
Quarter: 2011Q1

REPORT INFORMATION
  Report Type: 
  Country: None (occurrence: None)
  Receive Date: 20110215
  Receipt Date: 20110208
  Transmission Date: 20110831
  Serious: Yes (Hospitalization)
  Sender: FDA-Public Use
  Company Number: FR-ROCHE-730246

PATIENT
  Sex: Female
  Weight: 70 kg

DRUGS (10)
  1. CYCLOPHOSPHAMIDE [Suspect]
     Route: 065
     Dates: start: 20100517, end: 20100719
  2. FLUOROURACIL [Suspect]
     Dosage: LAST DOSE PRIOR TO SAE: 19 JUL 2010, CUMULATIVE DOSE: 3460 MG
     Route: 042
     Dates: start: 20100517
  3. CEFPODOXIME PROXETIL [Concomitant]
     Dates: start: 20100531, end: 20100607
  4. NISISCO [Concomitant]
     Dates: start: 19900101
  5. ALPRAZOLAM [Concomitant]
  6. DOCETAXEL [Suspect]
     Route: 065
     Dates: start: 20100809, end: 20100809
  7. BEVACIZUMAB [Suspect]
     Dosage: LAST DOSE PRIOR TO SAE: 09 AUG 2010, CUMULATIVE DOSE: 5265 MG
     Route: 042
     Dates: start: 20100517
  8. DOCETAXEL [Suspect]
     Dosage: DOSAGE REDUCED BY 25 PERCENT
     Route: 065
  9. EPIRUBICIN [Suspect]
     Dosage: LAST DOSE PRIOR TO SAE: 19 JUL 2010, CUMULATIVE DOSE: 692 MG
     Route: 042
     Dates: start: 20100517
  10. ENDOTELON [Concomitant]

REACTIONS (2)
  - FEBRILE BONE MARROW APLASIA [None]
  - MUCOSAL INFLAMMATION [None]
